FAERS Safety Report 19240056 (Version 1)
Quarter: 2021Q2

REPORT INFORMATION
  Report Type: Spontaneous
  Country: PT (occurrence: PT)
  Receive Date: 20210510
  Receipt Date: 20210510
  Transmission Date: 20210717
  Serious: Yes (Disabling)
  Sender: FDA-Public Use
  Company Number: PT-PFIZER INC-2021473772

PATIENT
  Age: 32 Year
  Sex: Female

DRUGS (1)
  1. CHAMPIX [Suspect]
     Active Substance: VARENICLINE TARTRATE
     Dosage: UNK

REACTIONS (4)
  - Impaired work ability [Unknown]
  - Crying [Unknown]
  - Emotional disorder [Unknown]
  - Discomfort [Unknown]
